FAERS Safety Report 7009855-8 (Version None)
Quarter: 2010Q3

REPORT INFORMATION
  Report Type: 
  Country: None (occurrence: None)
  Receive Date: 20100923
  Receipt Date: 20100914
  Transmission Date: 20110219
  Serious: Yes (Death, Other)
  Sender: FDA-Public Use
  Company Number: US-AMGEN-QUU438097

PATIENT
  Sex: Female
  Weight: 80.2 kg

DRUGS (20)
  1. EPOGEN [Suspect]
     Indication: PRODUCT USED FOR UNKNOWN INDICATION
     Route: 042
     Dates: start: 20080213, end: 20080229
  2. HEPARIN SODIUM [Suspect]
     Route: 042
     Dates: start: 20080129, end: 20080229
  3. NOVOLIN R [Concomitant]
  4. REGLAN [Concomitant]
  5. CELLCEPT [Concomitant]
  6. NORMAL SALINE [Concomitant]
  7. PANTOPRAZOLE [Concomitant]
  8. SIMVASTATIN [Concomitant]
  9. LASIX [Concomitant]
  10. FEOSOL [Concomitant]
  11. ESOMEPRAZOLE MAGNESIUM [Concomitant]
  12. CITALOPRAM HYDROBROMIDE [Concomitant]
  13. PRILOSEC [Concomitant]
  14. ATORVASTATIN CALCIUM [Concomitant]
  15. DOXAZOSIN MESYLATE [Concomitant]
  16. AMLODIPINE BESYLATE [Concomitant]
  17. PLAVIX [Concomitant]
  18. DEXTROSE [Concomitant]
  19. LEXAPRO [Concomitant]
  20. FLONASE [Concomitant]

REACTIONS (4)
  - CARDIO-RESPIRATORY ARREST [None]
  - DIZZINESS [None]
  - DYSPNOEA [None]
  - LOSS OF CONSCIOUSNESS [None]
